FAERS Safety Report 5083313-2 (Version None)
Quarter: 2006Q3

REPORT INFORMATION
  Report Type: 
  Country: None (occurrence: None)
  Receive Date: 20060818
  Receipt Date: 20060810
  Transmission Date: 20061208
  Serious: Yes (Hospitalization)
  Sender: FDA-Public Use
  Company Number: US-JNJFOC-20060500118

PATIENT
  Sex: Female
  Weight: 81.65 kg

DRUGS (18)
  1. REMICADE [Suspect]
  2. REMICADE [Suspect]
     Indication: PSORIATIC ARTHROPATHY
     Dosage: UNSPECIFIED DATES-INDUCTION WEEKS 0,2, AND 6
  3. ULTRAVATE [Concomitant]
  4. DOVONEX [Concomitant]
  5. PERCOCET [Concomitant]
     Indication: PAIN
  6. FENTANYL [Concomitant]
     Indication: PAIN
     Route: 062
  7. E.E.S. [Concomitant]
  8. LEXAPRO [Concomitant]
  9. AVINZA [Concomitant]
  10. ADVAIR DISKUS 100/50 [Concomitant]
  11. ATROVENT [Concomitant]
  12. MAXAIR [Concomitant]
  13. AMITRIPTYLINE HCL [Concomitant]
  14. NEXIUM [Concomitant]
  15. LORCET-HD [Concomitant]
  16. AMBIEN [Concomitant]
  17. CLONAZEPAM [Concomitant]
  18. MOBIC [Concomitant]

REACTIONS (2)
  - HYPOGLYCAEMIA [None]
  - PANCREATITIS [None]
